FAERS Safety Report 24645123 (Version 1)
Quarter: 2024Q4

REPORT INFORMATION
  Report Type: Spontaneous
  Country: RO (occurrence: RO)
  Receive Date: 20241121
  Receipt Date: 20241121
  Transmission Date: 20250115
  Serious: Yes (Life-Threatening, Hospitalization, Other)
  Sender: SANDOZ
  Company Number: RO-MLMSERVICE-20210219-2736138-1

PATIENT
  Age: 46 Year
  Sex: Male

DRUGS (16)
  1. BASILIXIMAB [Suspect]
     Active Substance: BASILIXIMAB
     Indication: Renal transplant
     Dosage: UNK
     Route: 065
     Dates: start: 201709, end: 201709
  2. BASILIXIMAB [Suspect]
     Active Substance: BASILIXIMAB
     Indication: Immunosuppressant drug therapy
  3. MYCOPHENOLIC ACID [Suspect]
     Active Substance: MYCOPHENOLIC ACID
     Indication: Immunosuppressant drug therapy
     Dosage: 1080 MG, QD
     Route: 065
     Dates: start: 20200405, end: 20200407
  4. MYCOPHENOLIC ACID [Suspect]
     Active Substance: MYCOPHENOLIC ACID
     Dosage: 720 MG, QD
     Route: 065
     Dates: start: 20200407, end: 20200410
  5. MYCOPHENOLIC ACID [Suspect]
     Active Substance: MYCOPHENOLIC ACID
     Indication: Renal transplant
     Dosage: 720 MG, Q12H
     Route: 065
     Dates: start: 201709, end: 20200405
  6. PREDNISONE [Suspect]
     Active Substance: PREDNISONE
     Indication: Renal transplant
     Dosage: 5 MG, QD
     Route: 065
     Dates: start: 201709, end: 202004
  7. PREDNISONE [Suspect]
     Active Substance: PREDNISONE
     Indication: Immunosuppressant drug therapy
  8. AMOXICILLIN\CLAVULANIC ACID [Concomitant]
     Active Substance: AMOXICILLIN\CLAVULANIC ACID
     Indication: Product used for unknown indication
     Dosage: 1 DF, BID
     Route: 065
  9. AZITHROMYCIN [Concomitant]
     Active Substance: AZITHROMYCIN
     Indication: Antibiotic prophylaxis
     Dosage: 500 MG, QD
     Route: 065
  10. ENOXAPARIN [Concomitant]
     Active Substance: ENOXAPARIN
     Indication: Prophylaxis
     Dosage: 8000 UI, QD
     Route: 065
  11. LOPINAVIR\RITONAVIR [Interacting]
     Active Substance: LOPINAVIR\RITONAVIR
     Indication: COVID-19 pneumonia
     Dosage: 1 DF, Q12H
     Route: 065
     Dates: start: 20200502
  12. TACROLIMUS [Interacting]
     Active Substance: TACROLIMUS
     Dosage: EXTENDED RELEASE
     Route: 048
     Dates: start: 20200410, end: 20200412
  13. TACROLIMUS [Interacting]
     Active Substance: TACROLIMUS
     Dosage: EXTENDED RELEASE
     Route: 048
     Dates: start: 20200426, end: 20200428
  14. TACROLIMUS [Interacting]
     Active Substance: TACROLIMUS
     Indication: Immunosuppressant drug therapy
     Dosage: EXTENDED RELEASE
     Route: 048
     Dates: start: 20200407, end: 20200410
  15. TACROLIMUS [Interacting]
     Active Substance: TACROLIMUS
     Indication: Renal transplant
     Dosage: EXTENDED RELEASE
     Route: 048
     Dates: start: 201709, end: 20200407
  16. TACROLIMUS [Interacting]
     Active Substance: TACROLIMUS
     Dosage: EXTENDED RELEASE
     Route: 048
     Dates: start: 20200428, end: 20200428

REACTIONS (11)
  - Nephropathy [Recovered/Resolved]
  - Dehydration [Recovered/Resolved]
  - Hypercoagulation [Recovered/Resolved]
  - Drug interaction [Unknown]
  - Acute kidney injury [Recovered/Resolved]
  - Nephropathy toxic [Recovered/Resolved]
  - COVID-19 pneumonia [Recovered/Resolved]
  - Thrombocytopenia [Recovered/Resolved]
  - Pneumonia bacterial [Recovered/Resolved]
  - Renal tubular dysfunction [Recovered/Resolved]
  - Overdose [Unknown]

NARRATIVE: CASE EVENT DATE: 20200501
